FAERS Safety Report 5294077-1 (Version None)
Quarter: 2007Q2

REPORT INFORMATION
  Report Type: 
  Country: None (occurrence: None)
  Receive Date: 20070406
  Receipt Date: 20070323
  Transmission Date: 20071010
  Serious: Yes (Hospitalization)
  Sender: FDA-Public Use
  Company Number: POMP-10996

PATIENT
  Age: 7 Month
  Sex: Male
  Weight: 5.3 kg

DRUGS (2)
  1. MYOZYME [Suspect]
     Indication: GLYCOGEN STORAGE DISEASE TYPE II
     Dates: start: 20060911
  2. BACTRIM [Concomitant]

REACTIONS (19)
  - BACTERAEMIA [None]
  - BLEPHAROSPASM [None]
  - BLOOD CULTURE POSITIVE [None]
  - BLOOD IMMUNOGLOBULIN G INCREASED [None]
  - BODY TEMPERATURE DECREASED [None]
  - BRONCHIAL HYPERREACTIVITY [None]
  - CENTRAL LINE INFECTION [None]
  - CONDITION AGGRAVATED [None]
  - DEVICE RELATED INFECTION [None]
  - ENTEROBACTER INFECTION [None]
  - HAEMOGLOBIN DECREASED [None]
  - MEAN CELL VOLUME DECREASED [None]
  - NYSTAGMUS [None]
  - PARAINFLUENZAE VIRUS INFECTION [None]
  - PNEUMONIA [None]
  - PYREXIA [None]
  - RESPIRATORY DISTRESS [None]
  - STAPHYLOCOCCAL INFECTION [None]
  - WHITE BLOOD CELL COUNT DECREASED [None]
